FAERS Safety Report 4426432-3 (Version None)
Quarter: 2004Q3

REPORT INFORMATION
  Report Type: 
  Country: None (occurrence: None)
  Receive Date: 20040811
  Receipt Date: 20040723
  Transmission Date: 20050211
  Serious: Yes (Hospitalization)
  Sender: FDA-Public Use
  Company Number: GBS040715286

PATIENT
  Age: 41 Year
  Sex: Female

DRUGS (3)
  1. HUMULIN N [Suspect]
     Indication: DIABETES MELLITUS INSULIN-DEPENDENT
     Dosage: 20 U IN THE EVENING
     Dates: start: 19990101, end: 20040714
  2. HUMALOG [Suspect]
  3. RADIOTHERAPY [Concomitant]

REACTIONS (5)
  - FEELING ABNORMAL [None]
  - HYPOGLYCAEMIA [None]
  - INFLAMMATION [None]
  - NAUSEA [None]
  - PRURITUS [None]
